FAERS Safety Report 5330154-4 (Version None)
Quarter: 2007Q2

REPORT INFORMATION
  Report Type: 
  Country: None (occurrence: None)
  Receive Date: 20070521
  Receipt Date: 20070507
  Transmission Date: 20071010
  Serious: Yes (Disabling)
  Sender: FDA-Public Use
  Company Number: ES-ELI_LILLY_AND_COMPANY-ES200705002981

PATIENT
  Sex: Female

DRUGS (3)
  1. FORTEO [Suspect]
     Indication: SPINAL FRACTURE
     Dosage: 20 UNK, UNK
     Route: 058
     Dates: start: 20070417, end: 20070420
  2. PREGABALIN [Concomitant]
     Indication: NEUROPATHY
     Dates: start: 20060101
  3. AMITRIPTYLINE HCL [Concomitant]
     Indication: NEUROPATHY
     Dates: start: 20060101

REACTIONS (2)
  - COGNITIVE DISORDER [None]
  - DISORIENTATION [None]
